FAERS Safety Report 9405575 (Version 1)
Quarter: 2013Q3

REPORT INFORMATION
  Report Type: Spontaneous
  Country: US (occurrence: US)
  Receive Date: 20130717
  Receipt Date: 20130717
  Transmission Date: 20140515
  Serious: No
  Sender: FDA-Public Use
  Company Number: US-PFIZER INC-2013206607

PATIENT
  Age: 16 Year
  Sex: Female

DRUGS (1)
  1. ADVIL MIGRAINE [Suspect]
     Dosage: 2 ^TABLETS^, UNK

REACTIONS (3)
  - Drug administered to patient of inappropriate age [Unknown]
  - Ear discomfort [Unknown]
  - Pharyngeal oedema [Unknown]
